FAERS Safety Report 9280627 (Version 1)
Quarter: 2013Q2

REPORT INFORMATION
  Report Type: Spontaneous
  Country: TR (occurrence: None)
  Receive Date: 20130503
  Receipt Date: 20130503
  Transmission Date: 20140414
  Serious: Yes (Hospitalization, Other)
  Sender: FDA-Public Use
  Company Number: 2013/094

PATIENT
  Age: 25 Year
  Sex: Female

DRUGS (1)
  1. VENLAFAXINE [Suspect]
     Indication: MIGRAINE

REACTIONS (10)
  - Drug dependence [None]
  - Drug withdrawal syndrome [None]
  - Restlessness [None]
  - Dysphonia [None]
  - Inappropriate affect [None]
  - Treatment noncompliance [None]
  - Decreased eye contact [None]
  - Decreased interest [None]
  - Nausea [None]
  - Dizziness [None]
